FAERS Safety Report 5159284-7 (Version None)
Quarter: 2006Q4

REPORT INFORMATION
  Report Type: 
  Country: None (occurrence: None)
  Receive Date: 20061120
  Receipt Date: 20061103
  Transmission Date: 20070319
  Serious: Yes (Life-Threatening)
  Sender: FDA-Public Use
  Company Number: 36974

PATIENT
  Age: 7 Year
  Sex: Male

DRUGS (3)
  1. PILOCARPINE HYDROCHLORIDE [Suspect]
     Dosage: OPHT
     Route: 047
     Dates: start: 20060926, end: 20060926
  2. BECLOMETHASONE DIPROPIONATE [Concomitant]
  3. SALBUTAMOL [Concomitant]

REACTIONS (7)
  - ABDOMINAL PAIN [None]
  - BRONCHOSPASM [None]
  - COLD SWEAT [None]
  - FATIGUE [None]
  - LETHARGY [None]
  - LISTLESS [None]
  - PALLOR [None]
